FAERS Safety Report 12175537 (Version 2)
Quarter: 2016Q1

REPORT INFORMATION
  Report Type: Report from Study
  Country: SE (occurrence: SE)
  Receive Date: 20160314
  Receipt Date: 20160321
  Transmission Date: 20160526
  Serious: Yes (Hospitalization, Disabling)
  Sender: FDA-Public Use
  Company Number: SE-ABBVIE-16P-150-1578879-00

PATIENT
  Sex: Male

DRUGS (1)
  1. DUODOPA [Suspect]
     Active Substance: CARBIDOPA\LEVODOPA
     Indication: PARKINSON^S DISEASE
     Route: 050
     Dates: start: 19921117, end: 201603

REACTIONS (3)
  - General physical health deterioration [Not Recovered/Not Resolved]
  - Wheelchair user [Not Recovered/Not Resolved]
  - Weight decreased [Not Recovered/Not Resolved]
